FAERS Safety Report 7585068-6 (Version None)
Quarter: 2011Q2

REPORT INFORMATION
  Report Type: 
  Country: None (occurrence: None)
  Receive Date: 20110630
  Receipt Date: 20110621
  Transmission Date: 20111010
  Serious: Yes (Other)
  Sender: FDA-Public Use
  Company Number: US-ASTRAZENECA-2010SE31275

PATIENT
  Age: 54 Year
  Sex: Male
  Weight: 59 kg

DRUGS (10)
  1. SEROQUEL [Suspect]
     Indication: MOOD SWINGS
     Route: 048
     Dates: start: 20090827
  2. SEROQUEL [Suspect]
     Route: 048
     Dates: start: 20090827
  3. XANAX [Concomitant]
  4. VICODIN [Concomitant]
  5. SEROQUEL [Suspect]
     Indication: BIPOLAR I DISORDER
     Route: 048
     Dates: start: 20090827
  6. SEROQUEL [Suspect]
     Route: 048
     Dates: start: 20090827
  7. SEROQUEL [Suspect]
     Route: 048
     Dates: start: 20090827
  8. KEPPRA [Concomitant]
  9. SEROQUEL [Suspect]
     Route: 048
     Dates: start: 20090827
  10. FENTAC [Concomitant]

REACTIONS (4)
  - OFF LABEL USE [None]
  - NEOPLASM MALIGNANT [None]
  - AMNESIA [None]
  - CONVULSION [None]
